FAERS Safety Report 6821799-0 (Version None)
Quarter: 2010Q3

REPORT INFORMATION
  Report Type: 
  Country: None (occurrence: None)
  Receive Date: 20100707
  Receipt Date: 20100707
  Transmission Date: 20110219
  Serious: Yes (Other)
  Sender: FDA-Public Use
  Company Number: None

PATIENT
  Sex: Female

DRUGS (1)
  1. AVANDARYL [Suspect]
     Indication: DIABETES MELLITUS
     Dosage: 4 MG 1/2 TAB QAM PO 4 MG 1/2 TAB QPM PO
     Route: 048
     Dates: start: 20070401, end: 20100401

REACTIONS (1)
  - HAEMORRHAGE [None]
